FAERS Safety Report 5243958-3 (Version None)
Quarter: 2007Q1

REPORT INFORMATION
  Report Type: 
  Country: None (occurrence: None)
  Receive Date: 20070220
  Receipt Date: 20070220
  Transmission Date: 20070707
  Serious: Yes (Hospitalization)
  Sender: FDA-Public Use
  Company Number: None

PATIENT
  Age: 80 Year
  Sex: Male
  Weight: 75.7507 kg

DRUGS (4)
  1. FLUDROCORTISONE ACETATE [Suspect]
     Indication: HYPOTENSION
     Dosage: 0.3 MG BID PO
     Route: 048
     Dates: start: 20061218, end: 20070213
  2. OXYBUTYNIN [Concomitant]
  3. HYDROCORTISONE [Concomitant]
  4. MIDODRINE [Concomitant]

REACTIONS (5)
  - DELIRIUM [None]
  - HYPERTENSION [None]
  - HYPOKALAEMIA [None]
  - MENTAL STATUS CHANGES [None]
  - METABOLIC ALKALOSIS [None]
